FAERS Safety Report 8218405-X (Version None)
Quarter: 2012Q1

REPORT INFORMATION
  Report Type: 
  Country: None (occurrence: None)
  Receive Date: 20120319
  Receipt Date: 20120306
  Transmission Date: 20120608
  Serious: Yes (Hospitalization)
  Sender: FDA-Public Use
  Company Number: ES-GLAXOSMITHKLINE-B0788910A

PATIENT
  Age: 16 Year
  Sex: Female
  Weight: 45 kg

DRUGS (1)
  1. LAMICTAL [Suspect]
     Indication: EPILEPSY
     Route: 048
     Dates: start: 20120122, end: 20120212

REACTIONS (10)
  - PYREXIA [None]
  - PAIN IN EXTREMITY [None]
  - STOMATITIS [None]
  - ANAL INFLAMMATION [None]
  - ODYNOPHAGIA [None]
  - STEVENS-JOHNSON SYNDROME [None]
  - RASH GENERALISED [None]
  - BACK PAIN [None]
  - DYSURIA [None]
  - VAGINAL INFLAMMATION [None]
